FAERS Safety Report 4725015-5 (Version None)
Quarter: 2005Q3

REPORT INFORMATION
  Report Type: 
  Country: None (occurrence: None)
  Receive Date: 20050722
  Receipt Date: 20050711
  Transmission Date: 20060218
  Serious: Yes (Other)
  Sender: FDA-Public Use
  Company Number: 2005098115

PATIENT
  Age: 82 Year
  Sex: Female
  Weight: 92.5338 kg

DRUGS (4)
  1. ZITHROMAX [Suspect]
     Indication: GASTROINTESTINAL INFECTION
     Dosage: 500 MG (500 MG), ORAL
     Route: 048
     Dates: start: 20050701, end: 20050703
  2. GLYNASE [Concomitant]
  3. WARFARIN SODIUM [Concomitant]
  4. ALL OTHER THERAPEUTIC PRODUCTS (ALL OTHER THERAPEUTIC PRODUCTS) [Concomitant]

REACTIONS (9)
  - ABASIA [None]
  - ABNORMAL BEHAVIOUR [None]
  - CEREBROVASCULAR ACCIDENT [None]
  - DIZZINESS [None]
  - DYSSTASIA [None]
  - HALLUCINATION [None]
  - INCOHERENT [None]
  - LACRIMATION INCREASED [None]
  - PHARMACEUTICAL PRODUCT COMPLAINT [None]
